FAERS Safety Report 18035338 (Version 1)
Quarter: 2020Q3

REPORT INFORMATION
  Report Type: Spontaneous
  Country: US (occurrence: US)
  Receive Date: 20200716
  Receipt Date: 20200716
  Transmission Date: 20201103
  Serious: Yes (Hospitalization)
  Sender: FDA-Public Use
  Company Number: None

PATIENT
  Age: 73 Year
  Sex: Male
  Weight: 75.75 kg

DRUGS (1)
  1. LOSARTAN (LOSARTAN POTASSIUM 100MG TAB) [Suspect]
     Active Substance: LOSARTAN POTASSIUM
     Indication: HYPERTENSION
     Route: 048
     Dates: start: 20161209, end: 20190815

REACTIONS (5)
  - Blood creatinine increased [None]
  - Acute kidney injury [None]
  - Blood urea increased [None]
  - Renal impairment [None]
  - Hyperkalaemia [None]

NARRATIVE: CASE EVENT DATE: 20190815
